FAERS Safety Report 5989412-2 (Version None)
Quarter: 2008Q4

REPORT INFORMATION
  Report Type: 
  Country: None (occurrence: None)
  Receive Date: 20081210
  Receipt Date: 20081208
  Transmission Date: 20090506
  Serious: Yes (Other)
  Sender: FDA-Public Use
  Company Number: US-PFIZER INC-2008091709

PATIENT
  Sex: Male
  Weight: 75.2 kg

DRUGS (2)
  1. BLINDED *PLACEBO [Suspect]
     Indication: IDIOPATHIC PULMONARY FIBROSIS
     Dates: start: 20081016
  2. BLINDED SILDENAFIL CITRATE [Suspect]
     Indication: IDIOPATHIC PULMONARY FIBROSIS
     Dates: start: 20081016

REACTIONS (1)
  - BILIARY COLIC [None]
